FAERS Safety Report 12467683 (Version 1)
Quarter: 2016Q2

REPORT INFORMATION
  Report Type: Spontaneous
  Country: US (occurrence: None)
  Receive Date: 20160614
  Receipt Date: 20160614
  Transmission Date: 20160815
  Serious: Yes (Other)
  Sender: FDA-Public Use
  Company Number: None

PATIENT
  Age: 78 Year
  Sex: Female
  Weight: 52.1 kg

DRUGS (2)
  1. LOSARTAN. [Concomitant]
     Active Substance: LOSARTAN
  2. EVEROLIMUS, 10 MG [Suspect]
     Active Substance: EVEROLIMUS
     Indication: NEUROENDOCRINE CARCINOMA METASTATIC
     Route: 048
     Dates: start: 20160210, end: 20160312

REACTIONS (4)
  - Wheezing [None]
  - Respiratory tract oedema [None]
  - Lip swelling [None]
  - Erythema [None]

NARRATIVE: CASE EVENT DATE: 20160311
